FAERS Safety Report 16635642 (Version 1)
Quarter: 2019Q3

REPORT INFORMATION
  Report Type: Spontaneous
  Country: FR (occurrence: FR)
  Receive Date: 20190726
  Receipt Date: 20190726
  Transmission Date: 20191004
  Serious: Yes (Hospitalization)
  Sender: FDA-Public Use
  Company Number: FR-PROVELL PHARMACEUTICALS-2071339

PATIENT
  Age: 59 Year
  Sex: Female
  Weight: 66 kg

DRUGS (26)
  1. INEXIUM [Suspect]
     Active Substance: ESOMEPRAZOLE
     Route: 048
     Dates: start: 20190527
  2. ALDACTONE [Suspect]
     Active Substance: SPIRONOLACTONE
     Route: 048
     Dates: start: 201902, end: 20190526
  3. NORADRENALINE [Suspect]
     Active Substance: NOREPINEPHRINE
     Route: 042
     Dates: start: 20190527, end: 20190612
  4. ZYLORIC [Suspect]
     Active Substance: ALLOPURINOL
     Route: 048
     Dates: start: 201812, end: 20190526
  5. DOBUTAMINE PANPHARMA [Suspect]
     Active Substance: DOBUTAMINE HYDROCHLORIDE
     Route: 042
     Dates: start: 20190527, end: 20190530
  6. BACTRIM [Suspect]
     Active Substance: SULFAMETHOXAZOLE\TRIMETHOPRIM
     Route: 048
     Dates: start: 20190529
  7. ELIQUIS [Suspect]
     Active Substance: APIXABAN
     Route: 048
     Dates: start: 201812, end: 20190526
  8. CORDARONE [Suspect]
     Active Substance: AMIODARONE HYDROCHLORIDE
     Route: 042
     Dates: start: 20190529, end: 20190601
  9. STILNOX [Suspect]
     Active Substance: ZOLPIDEM TARTRATE
     Route: 048
     Dates: start: 20190520, end: 20190526
  10. TAHOR [Suspect]
     Active Substance: ATORVASTATIN CALCIUM
     Route: 048
     Dates: start: 201812, end: 20190526
  11. PRAVASTATIN. [Suspect]
     Active Substance: PRAVASTATIN
     Route: 048
     Dates: start: 20190527, end: 20190625
  12. CORDARONE [Suspect]
     Active Substance: AMIODARONE HYDROCHLORIDE
     Route: 048
     Dates: start: 2008, end: 20190526
  13. NEORAL [Suspect]
     Active Substance: CYCLOSPORINE
     Route: 048
     Dates: start: 20190529
  14. LASILIX [Suspect]
     Active Substance: FUROSEMIDE
     Route: 048
     Dates: start: 2008, end: 20190526
  15. EUTHYROX [Suspect]
     Active Substance: LEVOTHYROXINE SODIUM
     Indication: HYPOTHYROIDISM
     Route: 048
     Dates: start: 2008
  16. REVATIO [Suspect]
     Active Substance: SILDENAFIL CITRATE
     Route: 048
     Dates: start: 20190527, end: 20190605
  17. PROPOFOL. [Suspect]
     Active Substance: PROPOFOL
     Route: 042
     Dates: start: 20190527, end: 20190530
  18. HYDROCORTISONE UPJOHN [Suspect]
     Active Substance: HYDROCORTISONE
     Route: 042
     Dates: start: 20190607
  19. CORTANCYL [Suspect]
     Active Substance: PREDNISONE
     Route: 048
     Dates: start: 20190527
  20. VALACYCLOVIR [Suspect]
     Active Substance: VALACYCLOVIR HYDROCHLORIDE
     Route: 048
     Dates: start: 20190603
  21. ENTRESTO [Suspect]
     Active Substance: SACUBITRIL\VALSARTAN
     Route: 048
     Dates: start: 20181220, end: 20190526
  22. LOVENOX [Suspect]
     Active Substance: ENOXAPARIN SODIUM
     Route: 058
     Dates: start: 20190604, end: 20190614
  23. REMIFENTANIL MYLAN [Suspect]
     Active Substance: REMIFENTANIL
     Route: 042
     Dates: start: 20190527, end: 20190530
  24. CELLCEPT [Suspect]
     Active Substance: MYCOPHENOLATE MOFETIL\MYCOPHENOLATE MOFETIL HYDROCHLORIDE
     Route: 048
     Dates: start: 20190529, end: 20190608
  25. MYFORTIC [Suspect]
     Active Substance: MYCOPHENOLATE SODIUM
     Route: 048
     Dates: start: 20190609, end: 20190621
  26. ADRENALINE AGUETTANT [Suspect]
     Active Substance: EPINEPHRINE
     Route: 042
     Dates: start: 20190527, end: 20190528

REACTIONS (1)
  - Interstitial lung disease [Recovering/Resolving]

NARRATIVE: CASE EVENT DATE: 20190618
